FAERS Safety Report 6969407-2 (Version None)
Quarter: 2010Q3

REPORT INFORMATION
  Report Type: 
  Country: None (occurrence: None)
  Receive Date: 20100902
  Receipt Date: 20100820
  Transmission Date: 20110219
  Serious: Yes (Hospitalization)
  Sender: FDA-Public Use
  Company Number: 017908

PATIENT
  Sex: Female

DRUGS (5)
  1. CERTOLIZUMAB PEGOL (CERTOLIZUMAB PEGOL) [Suspect]
     Indication: RHEUMATOID ARTHRITIS
     Dosage: (200 MG 1X/2 WEEKS SUBCUTANEOUS)
     Route: 058
     Dates: start: 20100324
  2. PREDNISOLONE [Concomitant]
  3. METHOTREXATE [Concomitant]
  4. RABEPRAZOLE SODIUM [Concomitant]
  5. RISEDRONATE SODIUM [Concomitant]

REACTIONS (1)
  - URINARY TRACT INFECTION [None]
